FAERS Safety Report 14127152 (Version 1)
Quarter: 2017Q4

REPORT INFORMATION
  Report Type: Spontaneous
  Country: FR (occurrence: FR)
  Receive Date: 20171026
  Receipt Date: 20171026
  Transmission Date: 20180321
  Serious: Yes (Hospitalization, Other)
  Sender: FDA-Public Use
  Company Number: FR-009507513-1710FRA011914

PATIENT
  Age: 54 Year
  Sex: Male

DRUGS (12)
  1. TERALITHE [Suspect]
     Active Substance: LITHIUM CARBONATE
     Dosage: 2 TABLETS (400MG) ON THE EVENING
     Route: 048
     Dates: start: 20170428, end: 20170429
  2. LOSARTAN POTASSIUM. [Suspect]
     Active Substance: LOSARTAN POTASSIUM
     Dosage: 2 TABLETS (50MG) AT 8 A.M.
     Route: 048
     Dates: start: 201702, end: 201704
  3. SERESTA [Concomitant]
     Active Substance: OXAZEPAM
     Dosage: 50 MG/1 TABLET ON THE EVENING
     Route: 048
  4. CLOBAZAM [Concomitant]
     Active Substance: CLOBAZAM
     Dosage: 10 MG 1 TABLET IN THE EVENING
     Route: 048
  5. ACETAMINOPHEN. [Concomitant]
     Active Substance: ACETAMINOPHEN
     Dosage: 1 G IF NEEDED
  6. LOSARTAN POTASSIUM. [Suspect]
     Active Substance: LOSARTAN POTASSIUM
     Dosage: 1 TABLET (50MG) AT 8 A.M.
     Route: 048
     Dates: start: 201701, end: 201702
  7. LOSARTAN POTASSIUM. [Suspect]
     Active Substance: LOSARTAN POTASSIUM
     Dosage: 1 TABLET (50MG) AT 8 A.M.
     Route: 048
     Dates: start: 201705, end: 201706
  8. DEPAKOTE [Concomitant]
     Active Substance: DIVALPROEX SODIUM
     Dosage: 500 MG/1 TABLET ON THE EVENING
     Route: 048
  9. LERCANIDIPINE [Concomitant]
     Active Substance: LERCANIDIPINE
     Dosage: 1/4 TABLET MORNING AND EVENING
     Route: 048
  10. TERALITHE [Suspect]
     Active Substance: LITHIUM CARBONATE
     Indication: BIPOLAR I DISORDER
     Dosage: 2.5 TABLETS (400MG) ON THE EVENING
     Route: 048
     Dates: start: 20140122, end: 20170130
  11. TERALITHE [Suspect]
     Active Substance: LITHIUM CARBONATE
     Dosage: 3 TABLETS (400MG) ON THE EVENING
     Route: 048
     Dates: start: 20170131, end: 20170427
  12. LEVOTHYROXINE SODIUM. [Concomitant]
     Active Substance: LEVOTHYROXINE SODIUM
     Dosage: 50 MICROGRAM/ ONE TABLET AT 8 A.M.
     Route: 048

REACTIONS (3)
  - Antipsychotic drug level increased [Recovered/Resolved]
  - Renal impairment [Recovered/Resolved]
  - Renal failure [Recovered/Resolved]

NARRATIVE: CASE EVENT DATE: 20170429
